FAERS Safety Report 10016072 (Version 1)
Quarter: 2014Q1

REPORT INFORMATION
  Report Type: Spontaneous
  Country: EC (occurrence: EC)
  Receive Date: 20140317
  Receipt Date: 20140317
  Transmission Date: 20141002
  Serious: Yes (Death, Other)
  Sender: FDA-Public Use
  Company Number: EC-PFIZER INC-2014075471

PATIENT
  Age: 70 Year
  Sex: Male

DRUGS (1)
  1. LYRICA [Suspect]
     Indication: PARAESTHESIA
     Dosage: 75 MG, 2X/DAY
     Route: 048
     Dates: start: 201305

REACTIONS (2)
  - Prostate cancer [Fatal]
  - Dysphagia [Unknown]
